FAERS Safety Report 18701996 (Version 2)
Quarter: 2021Q1

REPORT INFORMATION
  Report Type: Spontaneous
  Country: BR (occurrence: BR)
  Receive Date: 20210105
  Receipt Date: 20210120
  Transmission Date: 20210419
  Serious: Yes (Other)
  Sender: FDA-Public Use
  Company Number: NVSC2020BR346288

PATIENT
  Age: 42 Year
  Sex: Female
  Weight: 55 kg

DRUGS (7)
  1. PANTOPRAZOLE [Concomitant]
     Active Substance: PANTOPRAZOLE
     Indication: PRODUCT USED FOR UNKNOWN INDICATION
     Dosage: 40 MG, QD (1X A DAY)
     Route: 048
  2. FAULDOXO [Concomitant]
     Active Substance: DOXORUBICIN HYDROCHLORIDE
     Dosage: 93.24 MG (EVRY 14 DAYS)
     Route: 042
     Dates: start: 20201103
  3. GENUXAL [Concomitant]
     Active Substance: CYCLOPHOSPHAMIDE
     Indication: BREAST CANCER
     Dosage: 932.4 MG (EVERY 14 DAYS)
     Route: 042
     Dates: start: 20201103
  4. FAULDOXO [Concomitant]
     Active Substance: DOXORUBICIN HYDROCHLORIDE
     Indication: BREAST CANCER
     Dosage: 93.24 MG (EVERY 14 DAYS)
     Route: 042
     Dates: start: 20201103
  5. ZARZIO 30 MU/0.5 ML SOLUTION FOR INJECTION OR INFUSION IN PRE?FILLED S [Suspect]
     Active Substance: FILGRASTIM
     Indication: NEUTROPENIA
     Dosage: 300 UG (EVERY 14 DAYS)
     Route: 058
     Dates: start: 20201104
  6. FOLIC ACID. [Concomitant]
     Active Substance: FOLIC ACID
     Indication: PRODUCT USED FOR UNKNOWN INDICATION
     Dosage: 5 MG, QD (1X A DAY)
     Route: 048
  7. ZARZIO 30 MU/0.5 ML SOLUTION FOR INJECTION OR INFUSION IN PRE?FILLED S [Suspect]
     Active Substance: FILGRASTIM
     Dosage: 300 UG (EVERY 14 DAYS)
     Route: 058
     Dates: start: 20201104

REACTIONS (2)
  - Neutropenia [Recovered/Resolved]
  - Therapeutic product ineffective [Unknown]

NARRATIVE: CASE EVENT DATE: 20201113
